FAERS Safety Report 10340573 (Version 4)
Quarter: 2014Q4

REPORT INFORMATION
  Report Type: Spontaneous
  Country: JP (occurrence: JP)
  Receive Date: 20140724
  Receipt Date: 20141014
  Transmission Date: 20150528
  Serious: Yes (Death, Life-Threatening, Other)
  Sender: FDA-Public Use
  Company Number: JP-GLAXOSMITHKLINE-B1015646A

PATIENT
  Age: 45 Year
  Sex: Female

DRUGS (5)
  1. THYRADIN [Concomitant]
     Active Substance: LEVOTHYROXINE
     Indication: HYPOTHYROIDISM
     Route: 048
  2. PAZOPANIB [Suspect]
     Active Substance: PAZOPANIB
     Route: 048
     Dates: start: 20140701, end: 20140715
  3. AMLODIN OD [Concomitant]
     Active Substance: AMLODIPINE BESYLATE
     Indication: HYPERTENSION
     Route: 048
  4. PAZOPANIB [Suspect]
     Active Substance: PAZOPANIB
     Indication: RENAL CANCER METASTATIC
     Route: 048
     Dates: start: 20140610, end: 20140630
  5. OLMETEC [Concomitant]
     Active Substance: OLMESARTAN MEDOXOMIL
     Indication: HYPERTENSION
     Route: 048

REACTIONS (7)
  - Cerebral haemorrhage [Fatal]
  - Proteinuria [Unknown]
  - Brain herniation [Unknown]
  - Brain oedema [Unknown]
  - Headache [Unknown]
  - Protein urine present [Recovering/Resolving]
  - Brain death [Unknown]

NARRATIVE: CASE EVENT DATE: 2014
